FAERS Safety Report 8847726 (Version 1)
Quarter: 2012Q4

REPORT INFORMATION
  Report Type: 
  Country: NL (occurrence: NL)
  Receive Date: 20121018
  Receipt Date: 20121018
  Transmission Date: 20130627
  Serious: Yes (Other)
  Sender: FDA-Public Use
  Company Number: NL-PFIZER INC-2012258434

PATIENT
  Age: 71 Year
  Sex: Female
  Weight: 79 kg

DRUGS (6)
  1. CELEBREX [Suspect]
     Indication: OSTEOARTHRITIS
     Dosage: 100 mg, 1x/day
     Dates: start: 20120919, end: 20120929
  2. LERCANIDIPINE [Concomitant]
     Dosage: 10 mg, 1x/day
     Dates: start: 20101027
  3. LOSARTAN [Concomitant]
     Dosage: 12.5 mg, 1x/day
     Dates: start: 20110325
  4. METOPROLOL [Concomitant]
     Dosage: 200 mg, 1x/day
  5. ALENDRONATE SODIUM/CALCIUM CARBONATE/COLECALCIFEROL [Concomitant]
     Dosage: 1 DF, 1x/day
     Dates: start: 20120313
  6. PANADOL [Concomitant]
     Dosage: 1000 mg, 3x/day
     Dates: start: 20111003

REACTIONS (1)
  - Mania [Recovered/Resolved]
